FAERS Safety Report 24961413 (Version 1)
Quarter: 2025Q1

REPORT INFORMATION
  Report Type: Spontaneous
  Country: CA (occurrence: CA)
  Receive Date: 20250212
  Receipt Date: 20250212
  Transmission Date: 20250409
  Serious: Yes (Other)
  Sender: FRESENIUS KABI
  Company Number: CA-FreseniusKabi-FK202501988

PATIENT
  Age: 62 Year
  Sex: Female

DRUGS (1)
  1. IDACIO [Suspect]
     Active Substance: ADALIMUMAB-AACF
     Indication: Psoriatic arthropathy
     Dosage: FOA-SOLUTION SUBCUTANEOUS
     Route: 058

REACTIONS (5)
  - Musculoskeletal stiffness [Recovered/Resolved]
  - Pain [Recovered/Resolved]
  - Psoriasis [Recovered/Resolved]
  - Drug ineffective [Recovered/Resolved]
  - Product substitution issue [Recovered/Resolved]
